FAERS Safety Report 14635607 (Version 2)
Quarter: 2018Q2

REPORT INFORMATION
  Report Type: Spontaneous
  Country: DE (occurrence: DE)
  Receive Date: 20180314
  Receipt Date: 20180409
  Transmission Date: 20180711
  Serious: Yes (Hospitalization)
  Sender: FDA-Public Use
  Company Number: DE-TEVA-2018-DE-870594

PATIENT
  Age: 26 Year
  Sex: Female
  Weight: 53 kg

DRUGS (4)
  1. QUETIAPINE. [Interacting]
     Active Substance: QUETIAPINE
     Indication: SLEEP DISORDER
     Dosage: 0-0-1
     Route: 048
     Dates: start: 20180104, end: 20180120
  2. QUETIAPINE. [Interacting]
     Active Substance: QUETIAPINE
     Indication: DEPRESSION
     Dosage: 1 DOSAGE FORMS DAILY; QUENTIAPIN 0-0-1 SERTRALIN 1-0-0
     Route: 048
  3. TRENANTONE [Interacting]
     Active Substance: LEUPROLIDE ACETATE
     Indication: ENDOMETRIOSIS
     Dosage: ALLE 3 MONATE
     Route: 058
     Dates: start: 20171011
  4. SERTRALINE [Suspect]
     Active Substance: SERTRALINE HYDROCHLORIDE
     Indication: DEPRESSION
     Dosage: 1 DOSAGE FORMS DAILY; 1-0-0
     Route: 065
     Dates: start: 20180104, end: 20180120

REACTIONS (9)
  - Chills [Unknown]
  - Drug interaction [Unknown]
  - Hypersensitivity [Unknown]
  - Cardiovascular disorder [Unknown]
  - Dyspnoea [Unknown]
  - Anxiety [Unknown]
  - Chest discomfort [Unknown]
  - Flushing [Unknown]
  - Paraesthesia [Unknown]

NARRATIVE: CASE EVENT DATE: 20180120
